FAERS Safety Report 9373830 (Version 1)
Quarter: 2013Q2

REPORT INFORMATION
  Report Type: Spontaneous
  Country: US (occurrence: US)
  Receive Date: 20130628
  Receipt Date: 20130628
  Transmission Date: 20140414
  Serious: No
  Sender: FDA-Public Use
  Company Number: US-B.I. PHARMACEUTICALS,INC./RIDGEFIELD-2013-BI-13327BP

PATIENT
  Age: 63 Year
  Sex: Female
  Weight: 76 kg

DRUGS (15)
  1. SPIRIVA [Suspect]
     Indication: CHRONIC OBSTRUCTIVE PULMONARY DISEASE
     Dosage: 18 MCG
     Route: 055
     Dates: start: 201211
  2. VITAMIN D [Concomitant]
     Indication: SUPPLEMENTATION THERAPY
     Dosage: 1000 MG
     Route: 048
     Dates: start: 201301
  3. ALPRALAZAM [Concomitant]
     Indication: ANXIETY
     Dosage: 50 MG
     Route: 048
     Dates: start: 201210
  4. DIOVAN [Concomitant]
     Indication: HYPERTENSION
     Dosage: 160 MG
     Route: 048
     Dates: start: 201210
  5. ALBUTEROL [Concomitant]
     Indication: CHRONIC OBSTRUCTIVE PULMONARY DISEASE
     Dosage: STRENGTH: ONE AMPULE
     Dates: start: 2006
  6. AMLODIPINE [Concomitant]
     Indication: CARDIAC DISORDER
     Dosage: 5 MG
     Route: 048
     Dates: start: 201301
  7. HUMOLG INSULIN PEN [Concomitant]
     Indication: TYPE 2 DIABETES MELLITUS
     Dosage: FORMULATION-(SUBCUTANEOUS)
     Route: 058
  8. PRAMIPEXOLE [Concomitant]
     Indication: RESTLESS LEGS SYNDROME
     Dosage: 20 MG
     Route: 048
     Dates: start: 201201
  9. PAXIL [Concomitant]
     Indication: DEPRESSION
     Dosage: 40 MG
     Route: 048
     Dates: start: 20130503
  10. ATENOLOL [Concomitant]
     Indication: HYPERTENSION
     Dosage: 50 MG
     Route: 048
     Dates: start: 201211
  11. GABAPENTIN [Concomitant]
     Indication: NEURALGIA
     Dosage: 800 MG
     Route: 048
     Dates: start: 201301
  12. FUROSEMIDE [Concomitant]
     Indication: OEDEMA
     Dosage: 80 MG
     Route: 048
     Dates: start: 201205
  13. ADVAIR DISKUS [Concomitant]
     Indication: CHRONIC OBSTRUCTIVE PULMONARY DISEASE
     Dosage: FORMULATION-(500-50) STRENGTH: ONE PUFF; DAILY DOSE: TWO PUFFS
     Route: 055
     Dates: start: 201005
  14. LANTUS [Concomitant]
     Indication: TYPE 2 DIABETES MELLITUS
     Dosage: FORMULATION-(SUBCUTANEOUS) ,STRENGTH: 28 UNITS; DAILY DOSE: 28 UNITS
     Route: 058
  15. TRAMADOL [Concomitant]
     Indication: NEURALGIA
     Dosage: STRENGTH: ONE TABLET;
     Route: 048
     Dates: start: 201302

REACTIONS (4)
  - Cataract [Recovered/Resolved]
  - Product quality issue [Unknown]
  - Product quality issue [Unknown]
  - Constipation [Not Recovered/Not Resolved]
